FAERS Safety Report 20786128 (Version 1)
Quarter: 2022Q2

REPORT INFORMATION
  Report Type: Spontaneous
  Country: US (occurrence: None)
  Receive Date: 20220504
  Receipt Date: 20220504
  Transmission Date: 20220721
  Serious: No
  Sender: FDA-Public Use
  Company Number: US-ROCHE-3054417

PATIENT
  Sex: Female

DRUGS (4)
  1. OCREVUS [Suspect]
     Active Substance: OCRELIZUMAB
     Indication: Multiple sclerosis
     Route: 042
     Dates: start: 20210914
  2. LASIX [Concomitant]
     Active Substance: FUROSEMIDE
  3. COLCRYS [Concomitant]
     Active Substance: COLCHICINE
  4. ALLOPURINOL [Concomitant]
     Active Substance: ALLOPURINOL

REACTIONS (3)
  - Self-medication [Unknown]
  - Fibromyalgia [Unknown]
  - Gout [Unknown]
